FAERS Safety Report 7035786-3 (Version None)
Quarter: 2010Q4

REPORT INFORMATION
  Report Type: 
  Country: None (occurrence: None)
  Receive Date: 20101008
  Receipt Date: 20100929
  Transmission Date: 20110411
  Serious: Yes (Death, Hospitalization)
  Sender: FDA-Public Use
  Company Number: CA-ROCHE-727648

PATIENT
  Sex: Male

DRUGS (6)
  1. BEVACIZUMAB [Suspect]
     Indication: GLIOBLASTOMA
     Dosage: FORM: INFUSION
     Route: 042
     Dates: start: 20100825, end: 20100908
  2. FRAGMIN [Concomitant]
  3. DILANTIN [Concomitant]
  4. DECADRON [Concomitant]
  5. TYLENOL [Concomitant]
  6. PRILOSEC [Concomitant]

REACTIONS (3)
  - DEATH [None]
  - DIARRHOEA [None]
  - HYPOAESTHESIA FACIAL [None]
